FAERS Safety Report 11832498 (Version 2)
Quarter: 2016Q1

REPORT INFORMATION
  Report Type: Spontaneous
  Country: US (occurrence: US)
  Receive Date: 20151214
  Receipt Date: 20160107
  Transmission Date: 20160525
  Serious: Yes (Hospitalization)
  Sender: FDA-Public Use
  Company Number: US-PFIZER INC-2015074326

PATIENT
  Age: 69 Year
  Sex: Female
  Weight: 65 kg

DRUGS (1)
  1. CALAN SR [Suspect]
     Active Substance: VERAPAMIL HYDROCHLORIDE
     Indication: HYPERTENSION
     Dosage: 360 MG, 1X/DAY
     Route: 048

REACTIONS (2)
  - Constipation [Not Recovered/Not Resolved]
  - Drug ineffective [Unknown]

NARRATIVE: CASE EVENT DATE: 2013
